FAERS Safety Report 24381421 (Version 1)
Quarter: 2024Q4

REPORT INFORMATION
  Report Type: Spontaneous
  Country: ES (occurrence: ES)
  Receive Date: 20241001
  Receipt Date: 20241001
  Transmission Date: 20250114
  Serious: Yes (Life-Threatening, Hospitalization, Other)
  Sender: ACCORD
  Company Number: ES-Accord-446719

PATIENT
  Age: 45 Year
  Sex: Female

DRUGS (6)
  1. HYDROXYCHLOROQUINE [Suspect]
     Active Substance: HYDROXYCHLOROQUINE
     Indication: Systemic lupus erythematosus
     Dates: start: 2001, end: 2020
  2. AMIODARONE [Concomitant]
     Active Substance: AMIODARONE
     Indication: Product used for unknown indication
  3. AZATHIOPRINE [Concomitant]
     Active Substance: AZATHIOPRINE
     Indication: Immunosuppressant drug therapy
  4. COLCHICINE [Concomitant]
     Active Substance: COLCHICINE
     Indication: Product used for unknown indication
  5. PREDNISONE [Concomitant]
     Active Substance: PREDNISONE
     Indication: Immunosuppressant drug therapy
  6. WARFARIN [Concomitant]
     Active Substance: WARFARIN
     Indication: Product used for unknown indication

REACTIONS (5)
  - Cardiomyopathy [Recovering/Resolving]
  - Bundle branch block right [Recovering/Resolving]
  - Atrial fibrillation [Recovering/Resolving]
  - Myocardial fibrosis [Recovering/Resolving]
  - Cardiac failure acute [Recovering/Resolving]

NARRATIVE: CASE EVENT DATE: 20200101
